FAERS Safety Report 17210682 (Version 1)
Quarter: 2019Q4

REPORT INFORMATION
  Report Type: Spontaneous
  Country: US (occurrence: US)
  Receive Date: 20191227
  Receipt Date: 20191227
  Transmission Date: 20200122
  Serious: No
  Sender: FDA-Public Use
  Company Number: US-TEVA-2019-US-1156186

PATIENT
  Sex: Female

DRUGS (1)
  1. LIDOCAINE 5% PATCH [Suspect]
     Active Substance: LIDOCAINE
     Route: 062
     Dates: start: 20191115

REACTIONS (1)
  - Blood pressure increased [Unknown]

NARRATIVE: CASE EVENT DATE: 20191217
